FAERS Safety Report 14088852 (Version 5)
Quarter: 2020Q3

REPORT INFORMATION
  Report Type: Spontaneous
  Country: NL (occurrence: NL)
  Receive Date: 20171014
  Receipt Date: 20200925
  Transmission Date: 20201102
  Serious: Yes (Hospitalization, Other)
  Sender: FDA-Public Use
  Company Number: NL-AUROBINDO-AUR-APL-2017-07943

PATIENT
  Age: 77 Year
  Sex: Male

DRUGS (8)
  1. CIPROFLOXACIN 750MG [Suspect]
     Active Substance: CIPROFLOXACIN
     Indication: INFECTION
     Dosage: 750 MILLIGRAM
     Route: 065
  2. CIPROFLOXACIN 750MG [Suspect]
     Active Substance: CIPROFLOXACIN
     Dosage: 1500 MILLIGRAM, ONCE A DAY (750 MG, UNK)
     Route: 065
  3. BERODUAL [Suspect]
     Active Substance: FENOTEROL HYDROBROMIDE\IPRATROPIUM BROMIDE
     Indication: PRODUCT USED FOR UNKNOWN INDICATION
     Dosage: UNK UNK, AS NECESSARY
     Route: 065
  4. DIPYRIDAMOLE. [Suspect]
     Active Substance: DIPYRIDAMOLE
     Indication: PRODUCT USED FOR UNKNOWN INDICATION
     Dosage: 20 MILLIGRAM, TWO TIMES A DAY
     Route: 065
  5. DEXAMETHASONE. [Suspect]
     Active Substance: DEXAMETHASONE
     Indication: PRODUCT USED FOR UNKNOWN INDICATION
     Dosage: 10 MILLIGRAM, ONCE A DAY
     Route: 042
  6. DIPYRIDAMOLE. [Suspect]
     Active Substance: DIPYRIDAMOLE
     Dosage: 20 MILLIGRAM
     Route: 065
  7. FENOTEROL;IPRATROPIUM [Suspect]
     Active Substance: FENOTEROL\IPRATROPIUM
     Indication: PRODUCT USED FOR UNKNOWN INDICATION
     Dosage: AS NECESSARY
     Route: 065
  8. LISINOPRIL. [Concomitant]
     Active Substance: LISINOPRIL
     Indication: PRODUCT USED FOR UNKNOWN INDICATION
     Dosage: 10 MILLIGRAM, DAILY
     Route: 065

REACTIONS (8)
  - Anuria [Recovered/Resolved]
  - Dehydration [Not Recovered/Not Resolved]
  - Hypotension [Recovered/Resolved]
  - Malaise [Recovered/Resolved]
  - Diarrhoea [Recovered/Resolved]
  - Renal failure [Recovered/Resolved]
  - Tubulointerstitial nephritis [Recovered/Resolved]
  - Abdominal pain [Recovered/Resolved]
